FAERS Safety Report 4506382-4 (Version None)
Quarter: 2004Q4

REPORT INFORMATION
  Report Type: 
  Country: None (occurrence: None)
  Receive Date: 20041025
  Receipt Date: 20030908
  Transmission Date: 20050328
  Serious: Yes (Death)
  Sender: FDA-Public Use
  Company Number: US-JNJFOC-20030901917

PATIENT
  Sex: 0

DRUGS (1)
  1. REMICADE [Suspect]
     Indication: TEMPORAL ARTERITIS
     Dosage: , 1 IN 1 DAY, INTRAVENOUS
     Route: 042

REACTIONS (1)
  - PNEUMONIA [None]
